FAERS Safety Report 5592459-1 (Version None)
Quarter: 2008Q1

REPORT INFORMATION
  Report Type: 
  Country: None (occurrence: None)
  Receive Date: 20080111
  Receipt Date: 20080102
  Transmission Date: 20080703
  Serious: Yes (Death, Other)
  Sender: FDA-Public Use
  Company Number: 2007-03565

PATIENT
  Age: 66 Year
  Sex: Male

DRUGS (1)
  1. VELCADE [Suspect]
     Indication: MULTIPLE MYELOMA
     Dates: start: 20060501, end: 20060928

REACTIONS (5)
  - ASTHENIA [None]
  - CSF TEST ABNORMAL [None]
  - DISEASE PROGRESSION [None]
  - HYPOAESTHESIA [None]
  - NEUROLOGICAL SYMPTOM [None]
